FAERS Safety Report 8510717-5 (Version None)
Quarter: 2012Q3

REPORT INFORMATION
  Report Type: 
  Country: None (occurrence: None)
  Receive Date: 20120716
  Receipt Date: 20120713
  Transmission Date: 20120928
  Serious: No
  Sender: FDA-Public Use
  Company Number: US-PFIZER INC-2012169655

PATIENT
  Sex: Male
  Weight: 65.76 kg

DRUGS (3)
  1. EFFEXOR [Suspect]
     Indication: MAJOR DEPRESSION
     Dosage: 75 MG, 1X/DAY
     Route: 048
     Dates: start: 20120613, end: 20120101
  2. EFFEXOR [Suspect]
     Indication: PANIC ATTACK
     Dosage: 75 MG, 2X/DAY
     Route: 048
     Dates: start: 20120101
  3. ADDERALL 5 [Concomitant]
     Indication: ATTENTION DEFICIT/HYPERACTIVITY DISORDER
     Dosage: UNK

REACTIONS (2)
  - SOMNOLENCE [None]
  - FEELING ABNORMAL [None]
